FAERS Safety Report 10015823 (Version 8)
Quarter: 2015Q3

REPORT INFORMATION
  Report Type: Spontaneous
  Country: US (occurrence: US)
  Receive Date: 20140317
  Receipt Date: 20150716
  Transmission Date: 20151125
  Serious: Yes (Hospitalization, Other)
  Sender: FDA-Public Use
  Company Number: US-009507513-1403USA004514

PATIENT
  Sex: Female

DRUGS (4)
  1. FOSAMAX [Suspect]
     Active Substance: ALENDRONATE SODIUM
     Indication: OSTEOPOROSIS
     Dosage: 70 MG, QW
     Route: 048
     Dates: end: 2008
  2. ALENDRONATE SODIUM. [Suspect]
     Active Substance: ALENDRONATE SODIUM
     Indication: OSTEOPOROSIS PROPHYLAXIS
     Dosage: 70 MG, UNK
     Route: 048
     Dates: start: 200805, end: 2009
  3. FOSAMAX [Suspect]
     Active Substance: ALENDRONATE SODIUM
     Indication: OSTEOPOROSIS PROPHYLAXIS
     Dosage: 10 MG, QD
     Route: 048
     Dates: start: 1995, end: 2010
  4. BONIVA [Suspect]
     Active Substance: IBANDRONATE SODIUM
     Indication: OSTEOPOROSIS PROPHYLAXIS
     Dosage: UNK
     Route: 048
     Dates: start: 2010, end: 201101

REACTIONS (16)
  - Intramedullary rod insertion [Unknown]
  - Femur fracture [Recovered/Resolved]
  - Arthritis [Unknown]
  - Arthritis [Unknown]
  - Bursa disorder [Unknown]
  - Joint dislocation [Unknown]
  - Joint dislocation reduction [Recovered/Resolved]
  - Medical device removal [Unknown]
  - Spinal osteoarthritis [Unknown]
  - Tendon disorder [Unknown]
  - Anaemia [Unknown]
  - Joint dislocation reduction [Not Recovered/Not Resolved]
  - Impaired healing [Unknown]
  - Surgery [Unknown]
  - Hypercholesterolaemia [Unknown]
  - Femur fracture [Unknown]

NARRATIVE: CASE EVENT DATE: 2010
